FAERS Safety Report 7357506-5 (Version None)
Quarter: 2011Q1

REPORT INFORMATION
  Report Type: 
  Country: None (occurrence: None)
  Receive Date: 20110309
  Receipt Date: 20101020
  Transmission Date: 20110831
  Serious: Yes (Hospitalization)
  Sender: FDA-Public Use
  Company Number: 2010SE48595

PATIENT
  Sex: Male

DRUGS (5)
  1. NEUTROGIN (LENOGASTRIM) [Concomitant]
  2. NEUTROGIN (LENOGRASTIM) [Concomitant]
  3. ESPO (EPOETIN ALFA) [Concomitant]
  4. FOSCAVIR [Suspect]
     Dosage: 312 MG QD, INTRAVENOUS DRIP
     Route: 041
     Dates: start: 20100420, end: 20100715
  5. ESPO SUBCUTANEOUS INJECTION (EPOETIN ALFA) [Concomitant]

REACTIONS (1)
  - HYPERCALCAEMIA [None]
